FAERS Safety Report 16237248 (Version 1)
Quarter: 2019Q2

REPORT INFORMATION
  Report Type: Spontaneous
  Country: JP (occurrence: JP)
  Receive Date: 20190425
  Receipt Date: 20190425
  Transmission Date: 20190711
  Serious: Yes (Other)
  Sender: FDA-Public Use
  Company Number: JP-SUN PHARMACEUTICAL INDUSTRIES LTD-2019RR-206354

PATIENT
  Age: 52 Year
  Sex: Female

DRUGS (9)
  1. PREDNISOLONE. [Interacting]
     Active Substance: PREDNISOLONE
     Indication: BRAIN OEDEMA
     Route: 065
  2. LANSOPRAZOLE. [Suspect]
     Active Substance: LANSOPRAZOLE
     Indication: PRODUCT USED FOR UNKNOWN INDICATION
     Route: 065
  3. CARBAMAZEPINE. [Interacting]
     Active Substance: CARBAMAZEPINE
     Indication: NEUROLOGICAL SYMPTOM
     Route: 065
  4. DOMPERIDONE [Concomitant]
     Active Substance: DOMPERIDONE
     Indication: PRODUCT USED FOR UNKNOWN INDICATION
     Route: 065
  5. PREDNISOLONE. [Interacting]
     Active Substance: PREDNISOLONE
     Indication: METASTASES TO CENTRAL NERVOUS SYSTEM
  6. EVEROLIMUS. [Interacting]
     Active Substance: EVEROLIMUS
     Indication: BRAIN NEOPLASM
     Dosage: 10 MILLIGRAM, UNK
     Route: 065
  7. SODIUM FERROUS CITRATE [Concomitant]
     Active Substance: SODIUM FERROUS CITRATE
     Indication: PRODUCT USED FOR UNKNOWN INDICATION
     Route: 065
  8. PROBUCOL [Concomitant]
     Active Substance: PROBUCOL
     Indication: PRODUCT USED FOR UNKNOWN INDICATION
     Route: 065
  9. REBAMIPIDE [Concomitant]
     Active Substance: REBAMIPIDE
     Indication: PRODUCT USED FOR UNKNOWN INDICATION
     Route: 065

REACTIONS (2)
  - Adverse event [Unknown]
  - Drug interaction [Unknown]
